FAERS Safety Report 15507827 (Version 1)
Quarter: 2018Q4

REPORT INFORMATION
  Report Type: Spontaneous
  Country: ZA (occurrence: ZA)
  Receive Date: 20181016
  Receipt Date: 20181016
  Transmission Date: 20190205
  Serious: Yes (Other)
  Sender: FDA-Public Use
  Company Number: IND-ZA-009507513-1810ZAF004491

PATIENT
  Sex: Male

DRUGS (8)
  1. EXINEF [Suspect]
     Active Substance: ETORICOXIB
     Dosage: 90 MG, UNK
     Route: 048
  2. STILNOX [Suspect]
     Active Substance: ZOLPIDEM TARTRATE
     Dosage: 12.5 MG, UNK
  3. LYRICA [Suspect]
     Active Substance: PREGABALIN
     Dosage: 150 MG, UNK
  4. SYNALEVE (ACETAMINOPHEN (+) CODEINE PHOSPHATE (+) MEPROBAMATE) [Suspect]
     Active Substance: ACETAMINOPHEN\CODEINE PHOSPHATE\MEPROBAMATE
  5. ECOTRIN [Suspect]
     Active Substance: ASPIRIN
     Dosage: 81 MG, UNK
  6. URBANOL [Suspect]
     Active Substance: CLOBAZAM
     Dosage: 5 MG, UNK
  7. ADCO SIMVASTATIN [Suspect]
     Active Substance: SIMVASTATIN
     Dosage: 20 MG, UNK
  8. CARLOC [Suspect]
     Active Substance: CARVEDILOL
     Dosage: 12.5 MG, UNK

REACTIONS (1)
  - Muscle disorder [Unknown]
